FAERS Safety Report 7399157-2 (Version None)
Quarter: 2011Q2

REPORT INFORMATION
  Report Type: 
  Country: None (occurrence: None)
  Receive Date: 20110407
  Receipt Date: 20110329
  Transmission Date: 20111010
  Serious: Yes (Hospitalization, Other)
  Sender: FDA-Public Use
  Company Number: JP-BRISTOL-MYERS SQUIBB COMPANY-15528730

PATIENT
  Age: 74 Year
  Sex: Male

DRUGS (9)
  1. MUCOSOLVAN [Concomitant]
     Route: 048
     Dates: start: 20110201
  2. MUCODYNE [Concomitant]
     Route: 048
     Dates: start: 20110201
  3. FLOMAX [Concomitant]
     Route: 048
     Dates: start: 20110201
  4. DASEN [Concomitant]
     Route: 048
     Dates: start: 20110201
  5. ZYLORIC [Concomitant]
     Route: 048
     Dates: start: 20110201
  6. HYDREA [Suspect]
     Indication: MYELODYSPLASTIC SYNDROME
     Route: 048
     Dates: start: 20090801, end: 20110203
  7. MEDICON [Concomitant]
     Route: 048
     Dates: start: 20110201
  8. KAKKONTO [Concomitant]
     Route: 048
     Dates: start: 20110201
  9. TRANILAST [Concomitant]
     Route: 048
     Dates: start: 20110201

REACTIONS (1)
  - INTERSTITIAL LUNG DISEASE [None]
